FAERS Safety Report 10766534 (Version 2)
Quarter: 2015Q3

REPORT INFORMATION
  Report Type: Spontaneous
  Country: JP (occurrence: JP)
  Receive Date: 20150205
  Receipt Date: 20150716
  Transmission Date: 20151125
  Serious: Yes (Hospitalization, Other)
  Sender: FDA-Public Use
  Company Number: JP-GLAXOSMITHKLINE-JP2015JPN012683

PATIENT
  Age: 72 Year
  Sex: Female

DRUGS (1)
  1. VALTREX [Suspect]
     Active Substance: VALACYCLOVIR HYDROCHLORIDE
     Indication: HERPES ZOSTER
     Route: 048

REACTIONS (10)
  - Psychiatric symptom [Recovered/Resolved]
  - Restlessness [Recovered/Resolved]
  - Cystitis [Recovered/Resolved]
  - Gait disturbance [Recovered/Resolved]
  - Oliguria [Recovered/Resolved]
  - Dyslalia [Recovered/Resolved]
  - Dehydration [Recovered/Resolved]
  - Renal disorder [Recovered/Resolved]
  - Encephalopathy [Recovered/Resolved]
  - Nausea [Recovered/Resolved]
